FAERS Safety Report 5275837-X (Version None)
Quarter: 2007Q1

REPORT INFORMATION
  Report Type: 
  Country: None (occurrence: None)
  Receive Date: 20070326
  Receipt Date: 20070315
  Transmission Date: 20070707
  Serious: Yes (Other)
  Sender: FDA-Public Use
  Company Number: PHEH2006US14992

PATIENT
  Sex: Male

DRUGS (1)
  1. ZOMETA [Suspect]
     Indication: METASTASES TO BONE
     Dosage: 4 MG
     Dates: start: 20051114, end: 20060803

REACTIONS (14)
  - BONE DISORDER [None]
  - DYSARTHRIA [None]
  - ERYTHEMA [None]
  - GINGIVAL INFECTION [None]
  - JOINT STIFFNESS [None]
  - MASTICATION DISORDER [None]
  - ORAL CAVITY FISTULA [None]
  - ORAL SOFT TISSUE DISORDER [None]
  - OSTEONECROSIS [None]
  - PAIN [None]
  - SWELLING [None]
  - TOOTH EXTRACTION [None]
  - TOOTH INFECTION [None]
  - X-RAY ABNORMAL [None]
